FAERS Safety Report 8481017-7 (Version None)
Quarter: 2012Q3

REPORT INFORMATION
  Report Type: 
  Country: None (occurrence: None)
  Receive Date: 20120702
  Receipt Date: 20120622
  Transmission Date: 20120928
  Serious: Yes (Other)
  Sender: FDA-Public Use
  Company Number: DE-CELGENEUS-062-C5013-11112583

PATIENT
  Age: 78 Year
  Sex: Female
  Weight: 95 kg

DRUGS (4)
  1. LENALIDOMIDE [Suspect]
     Indication: MULTIPLE MYELOMA
     Dosage: 25 MILLIGRAM
     Route: 048
     Dates: start: 20081229
  2. LENALIDOMIDE [Suspect]
     Dosage: 5 MILLIGRAM
     Route: 048
     Dates: start: 20100712, end: 20100809
  3. LENALIDOMIDE [Suspect]
     Dosage: 7.5 MILLIGRAM
     Route: 048
     Dates: start: 20100813
  4. DEXAMETHASONE [Suspect]
     Indication: MULTIPLE MYELOMA
     Dosage: 20 MILLIGRAM
     Route: 065
     Dates: start: 20081229, end: 20100809

REACTIONS (1)
  - BREAST CANCER [None]
